FAERS Safety Report 17346538 (Version 2)
Quarter: 2020Q2

REPORT INFORMATION
  Report Type: Report from Study
  Country: AR (occurrence: AR)
  Receive Date: 20200130
  Receipt Date: 20200617
  Transmission Date: 20200713
  Serious: Yes (Hospitalization, Other)
  Sender: FDA-Public Use
  Company Number: NVSC2020AR019802

PATIENT
  Age: 33 Year
  Sex: Female

DRUGS (1)
  1. AFINITOR [Suspect]
     Active Substance: EVEROLIMUS
     Indication: BREAST CANCER
     Dosage: 10 MG, QD (DAILY)
     Route: 065
     Dates: start: 20190625, end: 202001

REACTIONS (4)
  - Haematuria [Not Recovered/Not Resolved]
  - Anaemia [Not Recovered/Not Resolved]
  - Memory impairment [Unknown]
  - Drug ineffective [Not Recovered/Not Resolved]

NARRATIVE: CASE EVENT DATE: 202001
